FAERS Safety Report 19890134 (Version 3)
Quarter: 2021Q4

REPORT INFORMATION
  Report Type: Report from Study
  Country: IL (occurrence: IL)
  Receive Date: 20210927
  Receipt Date: 20211006
  Transmission Date: 20220304
  Serious: Yes (Hospitalization)
  Sender: FDA-Public Use
  Company Number: IL-EISAI MEDICAL RESEARCH-EC-2021-100344

PATIENT
  Age: 76 Year
  Sex: Male
  Weight: 67 kg

DRUGS (17)
  1. PEMBROLIZUMAB [Suspect]
     Active Substance: PEMBROLIZUMAB
     Indication: Malignant melanoma stage III
     Route: 041
     Dates: start: 20200924, end: 20210812
  2. PEMBROLIZUMAB [Suspect]
     Active Substance: PEMBROLIZUMAB
     Indication: Malignant melanoma stage IV
     Route: 041
     Dates: start: 20210902, end: 20210902
  3. LENVATINIB [Suspect]
     Active Substance: LENVATINIB
     Indication: Malignant melanoma stage III
     Route: 048
     Dates: start: 20200924
  4. LENVATINIB [Suspect]
     Active Substance: LENVATINIB
     Indication: Malignant melanoma stage IV
  5. LERCANIDIPINE HYDROCHLORIDE [Concomitant]
     Active Substance: LERCANIDIPINE HYDROCHLORIDE
     Dates: start: 201001
  6. ASPIRIN [Concomitant]
     Active Substance: ASPIRIN
     Dates: start: 201001
  7. ATENOLOL [Concomitant]
     Active Substance: ATENOLOL
     Dates: start: 201001
  8. CHOLECALCIFEROL [Concomitant]
     Active Substance: CHOLECALCIFEROL
     Dates: start: 201001
  9. CILARIL PLUS [Concomitant]
     Dates: start: 201001
  10. CYANOCOBALAMIN [Concomitant]
     Active Substance: CYANOCOBALAMIN
     Dates: start: 201001
  11. ATORVASTATIN CALCIUM [Concomitant]
     Active Substance: ATORVASTATIN CALCIUM
     Dates: start: 20190914
  12. EASY IRON [Concomitant]
     Dates: start: 202001
  13. EUTHYROX [Concomitant]
     Active Substance: LEVOTHYROXINE SODIUM
     Dates: start: 202001
  14. CALCIUM [Concomitant]
     Active Substance: CALCIUM
     Dates: start: 20210914
  15. CLOBETASOL [Concomitant]
     Active Substance: CLOBETASOL
     Dates: start: 20210228
  16. PREDNISONE [Concomitant]
     Active Substance: PREDNISONE
     Dates: start: 20210628
  17. STOPIT [Concomitant]
     Dates: start: 20210429

REACTIONS (1)
  - Acute kidney injury [Recovered/Resolved]

NARRATIVE: CASE EVENT DATE: 20210919
